FAERS Safety Report 22134928 (Version 2)
Quarter: 2023Q2

REPORT INFORMATION
  Report Type: Spontaneous
  Country: FR (occurrence: None)
  Receive Date: 20230324
  Receipt Date: 20230523
  Transmission Date: 20230721
  Serious: Yes (Other)
  Sender: FDA-Public Use
  Company Number: FR-Merck Healthcare KGaA-9390133

PATIENT
  Sex: Female

DRUGS (1)
  1. GONAL-F [Suspect]
     Active Substance: FOLLITROPIN
     Indication: Product used for unknown indication
     Route: 058

REACTIONS (2)
  - Abortion spontaneous [Unknown]
  - Vaginal haemorrhage [Not Recovered/Not Resolved]
